FAERS Safety Report 8480847-5 (Version None)
Quarter: 2012Q2

REPORT INFORMATION
  Report Type: 
  Country: None (occurrence: None)
  Receive Date: 20120625
  Receipt Date: 20120611
  Transmission Date: 20120825
  Serious: Yes (Hospitalization)
  Sender: FDA-Public Use
  Company Number: DKLU1081948

PATIENT
  Age: 13 Year
  Sex: Male

DRUGS (3)
  1. ONFI [Suspect]
     Indication: EPILEPSY
     Dosage: 30 MG MILLIGRAM(S), 1 IN 1 D, ORAL
     Route: 048
  2. LAMOTRIGINE [Suspect]
     Indication: EPILEPSY
     Dosage: 200 MG MILLIGRAM(S), AM, ORAL 300 MG MILLIGRAM(S), PM, ORAL
     Route: 048
  3. TRILEPTAL [Suspect]
     Indication: EPILEPSY
     Dosage: 600 MG MILLIGRAM(S), AM, ORAL 900 MG MILLIGRAM(S), PM, ORAL
     Route: 048

REACTIONS (8)
  - CHOLESTASIS [None]
  - CONVULSION [None]
  - TOXICITY TO VARIOUS AGENTS [None]
  - CHOLANGITIS [None]
  - BRONCHITIS [None]
  - BILIARY DILATATION [None]
  - PYREXIA [None]
  - CYTOLYTIC HEPATITIS [None]
